FAERS Safety Report 22294800 (Version 1)
Quarter: 2023Q2

REPORT INFORMATION
  Report Type: Spontaneous
  Country: US (occurrence: US)
  Receive Date: 20230508
  Receipt Date: 20230508
  Transmission Date: 20230721
  Serious: Yes (Hospitalization, Other)
  Sender: FDA-Public Use
  Company Number: US-009507513-2305USA001434

PATIENT
  Age: 72 Year
  Sex: Male

DRUGS (7)
  1. CUBICIN [Suspect]
     Active Substance: DAPTOMYCIN
     Indication: Osteomyelitis
     Dosage: UNK
     Route: 042
  2. RIVAROXABAN [Concomitant]
     Active Substance: RIVAROXABAN
  3. ASPIRIN [Concomitant]
     Active Substance: ASPIRIN
  4. DUONEB [Concomitant]
     Active Substance: ALBUTEROL SULFATE\IPRATROPIUM BROMIDE
  5. METOPROLOL [Concomitant]
     Active Substance: METOPROLOL
  6. AMIODARONE [Concomitant]
     Active Substance: AMIODARONE
  7. AMLODIPINE [Concomitant]
     Active Substance: AMLODIPINE BESYLATE

REACTIONS (2)
  - Eosinophilic pneumonia acute [Recovered/Resolved with Sequelae]
  - Off label use [Unknown]
